FAERS Safety Report 5973003-3 (Version None)
Quarter: 2008Q4

REPORT INFORMATION
  Report Type: 
  Country: None (occurrence: None)
  Receive Date: 20081201
  Receipt Date: 20081127
  Transmission Date: 20090506
  Serious: Yes (Death, Other)
  Sender: FDA-Public Use
  Company Number: PHHY2008NZ21332

PATIENT
  Sex: Male
  Weight: 83 kg

DRUGS (5)
  1. CLOZARIL [Suspect]
     Indication: SCHIZOPHRENIA
     Dosage: 350 MG, QHS
     Route: 048
     Dates: start: 20010101
  2. VALPROATE SODIUM [Concomitant]
     Indication: ELEVATED MOOD
     Dosage: 500 MG AM AND 100 MG NOCTE
     Route: 048
     Dates: start: 20010101
  3. CHLORPROMAZINE [Concomitant]
     Indication: PSYCHOTIC DISORDER
     Dosage: 100 MG, TID
     Route: 048
     Dates: start: 20020101
  4. SIMVASTATIN [Concomitant]
     Indication: BLOOD CHOLESTEROL INCREASED
     Dosage: 40 MG, QHS
     Route: 048
     Dates: start: 20050101
  5. PHENOTHIAZINE [Concomitant]

REACTIONS (7)
  - ARTERIOSCLEROSIS CORONARY ARTERY [None]
  - CARDIAC DEATH [None]
  - CHRONIC OBSTRUCTIVE PULMONARY DISEASE [None]
  - CORONARY ARTERY THROMBOSIS [None]
  - EMPHYSEMA [None]
  - MYOCARDIAL INFARCTION [None]
  - PULMONARY HAEMATOMA [None]
